FAERS Safety Report 19621403 (Version 1)
Quarter: 2021Q3

REPORT INFORMATION
  Report Type: Spontaneous
  Country: HR (occurrence: HR)
  Receive Date: 20210728
  Receipt Date: 20210728
  Transmission Date: 20211014
  Serious: Yes (Other)
  Sender: FDA-Public Use
  Company Number: HR-B.I. PHARMACEUTICALS,INC./RIDGEFIELD-2021-BI-117818

PATIENT
  Age: 65 Year

DRUGS (3)
  1. EMPAGLIFLOZIN [Suspect]
     Active Substance: EMPAGLIFLOZIN
     Indication: PRODUCT USED FOR UNKNOWN INDICATION
     Dosage: 10 MG (WITH URINE AND URINE SEDIMENT CONTROL)
  2. METFORMIN [Suspect]
     Active Substance: METFORMIN HYDROCHLORIDE
     Indication: PRODUCT USED FOR UNKNOWN INDICATION
     Dosage: 2X1 G (GRADUALLY TITRATE THE DOSE)
  3. JANUVIA [Suspect]
     Active Substance: SITAGLIPTIN PHOSPHATE
     Indication: PRODUCT USED FOR UNKNOWN INDICATION
     Dosage: SITAGLIPTIN 100 MILLIGRAM
     Route: 048

REACTIONS (4)
  - Pneumonia [Unknown]
  - Blood glucose abnormal [Unknown]
  - COVID-19 [Unknown]
  - Glomerular filtration rate abnormal [Unknown]
